FAERS Safety Report 4412945-7 (Version None)
Quarter: 2004Q3

REPORT INFORMATION
  Report Type: 
  Country: None (occurrence: None)
  Receive Date: 20040802
  Receipt Date: 20030818
  Transmission Date: 20050211
  Serious: No
  Sender: FDA-Public Use
  Company Number: US-GLAXOSMITHKLINE-A0422335A

PATIENT
  Age: 47 Day
  Sex: Male

DRUGS (1)
  1. ZANTAC [Suspect]
     Dosage: 4CC THREE TIMES PER DAY
     Route: 048

REACTIONS (2)
  - BRADYCARDIA [None]
  - MEDICATION ERROR [None]
